FAERS Safety Report 17677223 (Version 4)
Quarter: 2020Q2

REPORT INFORMATION
  Report Type: Report from Study
  Country: JP (occurrence: JP)
  Receive Date: 20200416
  Receipt Date: 20200612
  Transmission Date: 20200714
  Serious: Yes (Hospitalization)
  Sender: FDA-Public Use
  Company Number: JP-BAUSCH-BL-2020-011451

PATIENT
  Age: 57 Year
  Sex: Female
  Weight: 57.6 kg

DRUGS (7)
  1. ANTEBATE [Concomitant]
     Active Substance: BETAMETHASONE DIPROPIONATE
     Dates: start: 20200212
  2. AMVALO [Concomitant]
     Active Substance: AMLODIPINE BESYLATE\VALSARTAN
     Indication: PRODUCT USED FOR UNKNOWN INDICATION
  3. KHK4827 VS PLACEBO [Suspect]
     Active Substance: BRODALUMAB
     Indication: PALMOPLANTAR PUSTULOSIS
     Dosage: KHK4827 210 MG OR PLACEBO, 1 PER WEEK
     Route: 058
     Dates: start: 20200212, end: 20200226
  4. CELECOX [Concomitant]
     Active Substance: CELECOXIB
     Indication: PRODUCT USED FOR UNKNOWN INDICATION
  5. GASTER [Concomitant]
     Active Substance: FAMOTIDINE
     Indication: PRODUCT USED FOR UNKNOWN INDICATION
     Dosage: ORAL DRUG UNSPECIFIED FORM
     Route: 048
  6. GENTAMICIN SULPHATE [Concomitant]
     Active Substance: GENTAMICIN SULFATE
     Indication: PRODUCT USED FOR UNKNOWN INDICATION
     Dates: start: 20200219
  7. ANTEBATE [Concomitant]
     Active Substance: BETAMETHASONE DIPROPIONATE
     Indication: PRODUCT USED FOR UNKNOWN INDICATION
     Dosage: LOTION (EXCEPT LOTION FOR EYE)

REACTIONS (1)
  - Palmoplantar pustulosis [Recovered/Resolved]

NARRATIVE: CASE EVENT DATE: 20200406
